FAERS Safety Report 6713782-0 (Version None)
Quarter: 2010Q2

REPORT INFORMATION
  Report Type: 
  Country: None (occurrence: None)
  Receive Date: 20100506
  Receipt Date: 20100427
  Transmission Date: 20101027
  Serious: Yes (Hospitalization)
  Sender: FDA-Public Use
  Company Number: IT-PFIZER INC-2010040331

PATIENT
  Age: 60 Year
  Sex: Male

DRUGS (7)
  1. SUTENT [Suspect]
     Indication: RENAL CANCER
     Dosage: 50 MG, 1X/DAY
     Route: 048
     Dates: start: 20100216, end: 20100223
  2. ESOMEPRAZOLE SODIUM [Concomitant]
  3. MAGALDRATE [Concomitant]
  4. VALSARTAN [Concomitant]
  5. INSULIN [Concomitant]
  6. TRAMADOL HYDROCHLORIDE [Concomitant]
  7. LOPERAMIDE [Concomitant]

REACTIONS (4)
  - DYSPNOEA [None]
  - EJECTION FRACTION DECREASED [None]
  - PNEUMONIA [None]
  - TACHYCARDIA [None]
